FAERS Safety Report 19662214 (Version 1)
Quarter: 2021Q3

REPORT INFORMATION
  Report Type: Spontaneous
  Country: US (occurrence: US)
  Receive Date: 20210805
  Receipt Date: 20210805
  Transmission Date: 20211014
  Serious: Yes (Death, Congenital Anomaly)
  Sender: FDA-Public Use
  Company Number: US-PFIZER INC-6741

PATIENT
  Sex: Male

DRUGS (3)
  1. METHOTREXATE SODIUM. [Suspect]
     Active Substance: METHOTREXATE SODIUM
     Indication: ABORTION INDUCED
  2. METHOTREXATE SODIUM. [Suspect]
     Active Substance: METHOTREXATE SODIUM
     Indication: ABORTION
     Dosage: 50 MG/M2, ONCE
     Route: 064
  3. MISOPROSTOL. [Suspect]
     Active Substance: MISOPROSTOL
     Indication: ABORTION INDUCED
     Dosage: 800 UG
     Route: 064

REACTIONS (14)
  - Foetal growth restriction [Fatal]
  - Bradycardia [Fatal]
  - Anomaly of external ear congenital [Fatal]
  - Micrognathia [Fatal]
  - Cyanosis neonatal [Fatal]
  - Syndactyly [Fatal]
  - Congenital nail disorder [Fatal]
  - Floppy infant [Fatal]
  - Talipes [Fatal]
  - Maternal exposure during pregnancy [Fatal]
  - Low set ears [Fatal]
  - Premature baby [Fatal]
  - Multiple congenital abnormalities [Fatal]
  - Limb malformation [Fatal]
